FAERS Safety Report 6196074-0 (Version None)
Quarter: 2009Q2

REPORT INFORMATION
  Report Type: 
  Country: None (occurrence: None)
  Receive Date: 20090520
  Receipt Date: 20070419
  Transmission Date: 20091009
  Serious: Yes (Other)
  Sender: FDA-Public Use
  Company Number: US-ASTRAZENECA-2006UW24751

PATIENT
  Age: 54 Year
  Sex: Male
  Weight: 103 kg

DRUGS (19)
  1. SEROQUEL [Suspect]
     Indication: SLEEP DISORDER
     Dosage: 100-200 MG
     Route: 048
     Dates: start: 20030817
  2. SEROQUEL [Suspect]
     Indication: ANXIETY
     Dosage: 100-200 MG
     Route: 048
     Dates: start: 20030817
  3. SEROQUEL [Suspect]
     Indication: DEPRESSION
     Dosage: 100-200 MG
     Route: 048
     Dates: start: 20030817
  4. SEROQUEL [Suspect]
     Route: 048
     Dates: start: 20030101
  5. SEROQUEL [Suspect]
     Route: 048
     Dates: start: 20030101
  6. SEROQUEL [Suspect]
     Route: 048
     Dates: start: 20030101
  7. GLUCOPHAGE [Concomitant]
     Route: 065
     Dates: start: 20030101
  8. COZAAR [Concomitant]
     Dosage: 50-100 MG
     Route: 048
  9. ASPIRIN [Concomitant]
     Route: 048
  10. ACTOS [Concomitant]
     Route: 048
  11. DESYREL [Concomitant]
     Route: 048
  12. CELEXA [Concomitant]
     Route: 048
  13. SINEQUAN [Concomitant]
     Route: 048
  14. GLUCOTROL [Concomitant]
     Dosage: 2.5-10 MG
     Route: 048
  15. LIPITOR [Concomitant]
     Dosage: 10-20 MG
     Route: 048
  16. NORVASC [Concomitant]
     Dosage: 5-10 MG
     Route: 048
  17. AMITRIPTLINE HYDROCHLORIDE TAB [Concomitant]
     Route: 048
  18. ZOLOFT [Concomitant]
     Dosage: 25-100 MG
     Route: 048
  19. VISTARIL [Concomitant]
     Dosage: 25-100 MG
     Route: 048

REACTIONS (8)
  - AFFECTIVE DISORDER [None]
  - ANXIETY DISORDER [None]
  - BACK PAIN [None]
  - CONSTIPATION [None]
  - DIABETES MELLITUS [None]
  - GENERALISED ANXIETY DISORDER [None]
  - PERSONALITY DISORDER [None]
  - SUICIDAL IDEATION [None]
